FAERS Safety Report 25507739 (Version 2)
Quarter: 2025Q3

REPORT INFORMATION
  Report Type: Report from Study
  Country: JP (occurrence: JP)
  Receive Date: 20250703
  Receipt Date: 20250724
  Transmission Date: 20251021
  Serious: Yes (Other)
  Sender: UCB
  Company Number: JP-UCBJ-CD202508503UCBPHAPROD

PATIENT
  Age: 64 Year
  Sex: Female
  Weight: 58.5 kg

DRUGS (44)
  1. ROZANOLIXIZUMAB [Suspect]
     Active Substance: ROZANOLIXIZUMAB
     Indication: Myasthenia gravis
     Dosage: 420 MILLIGRAM, WEEKLY (QW)
     Route: 058
     Dates: start: 20240517, end: 20240621
  2. EFGARTIGIMOD ALFA [Concomitant]
     Active Substance: EFGARTIGIMOD ALFA
     Indication: Myasthenia gravis
     Dosage: 620 MILLIGRAM, WEEKLY (QW)
     Dates: end: 20250423
  3. EFGARTIGIMOD ALFA [Concomitant]
     Active Substance: EFGARTIGIMOD ALFA
     Dosage: 1008 MILLIGRAM, WEEKLY (QW)
     Dates: start: 20240820, end: 20240910
  4. EFGARTIGIMOD ALFA [Concomitant]
     Active Substance: EFGARTIGIMOD ALFA
     Dosage: 1008 MILLIGRAM, WEEKLY (QW)
     Dates: start: 20241011, end: 20241101
  5. EFGARTIGIMOD ALFA [Concomitant]
     Active Substance: EFGARTIGIMOD ALFA
     Dosage: 1008 MILLIGRAM, WEEKLY (QW)
     Dates: start: 20241122, end: 20241219
  6. EFGARTIGIMOD ALFA [Concomitant]
     Active Substance: EFGARTIGIMOD ALFA
     Dosage: 1008 MILLIGRAM, WEEKLY (QW)
     Dates: start: 20250110, end: 20250117
  7. EFGARTIGIMOD ALFA [Concomitant]
     Active Substance: EFGARTIGIMOD ALFA
     Dosage: 1008 MILLIGRAM, WEEKLY (QW)
     Dates: start: 20250219, end: 20250319
  8. EFGARTIGIMOD ALFA [Concomitant]
     Active Substance: EFGARTIGIMOD ALFA
     Dosage: 1008 MILLIGRAM, WEEKLY (QW)
     Dates: start: 20250401
  9. ZILBRYSQ [Concomitant]
     Active Substance: ZILUCOPLAN
     Indication: Myasthenia gravis
     Dosage: 23 MILLIGRAM, ONCE DAILY (QD)
     Route: 058
     Dates: start: 20240723, end: 20250107
  10. ZILBRYSQ [Concomitant]
     Active Substance: ZILUCOPLAN
     Dosage: 23 MILLIGRAM, ONCE DAILY (QD)
     Route: 058
     Dates: start: 20250121
  11. PREDNISOLONE [Concomitant]
     Active Substance: PREDNISOLONE
     Indication: Myasthenia gravis
     Dosage: 10 MILLIGRAM, ONCE DAILY (QD)
     Route: 048
     Dates: end: 20241017
  12. PREDNISOLONE [Concomitant]
     Active Substance: PREDNISOLONE
     Dosage: 9 MILLIGRAM, ONCE DAILY (QD)
     Route: 048
     Dates: start: 20241018, end: 20241114
  13. PREDNISOLONE [Concomitant]
     Active Substance: PREDNISOLONE
     Dosage: 8 MILLIGRAM, ONCE DAILY (QD)
     Route: 048
     Dates: start: 20241115, end: 20241128
  14. PREDNISOLONE [Concomitant]
     Active Substance: PREDNISOLONE
     Dosage: 7 MILLIGRAM, ONCE DAILY (QD)
     Route: 048
     Dates: start: 20241129, end: 20241212
  15. PREDNISOLONE [Concomitant]
     Active Substance: PREDNISOLONE
     Dosage: 6 MILLIGRAM, ONCE DAILY (QD)
     Route: 048
     Dates: start: 20241213, end: 20241226
  16. PREDNISOLONE [Concomitant]
     Active Substance: PREDNISOLONE
     Dosage: 5 MILLIGRAM, ONCE DAILY (QD)
     Route: 048
     Dates: start: 20241227
  17. CYCLOSPORINE [Concomitant]
     Active Substance: CYCLOSPORINE
     Indication: Myasthenia gravis
     Dosage: 170 MILLIGRAM, ONCE DAILY (QD)
     Route: 048
     Dates: end: 20250123
  18. MESTINON [Concomitant]
     Active Substance: PYRIDOSTIGMINE BROMIDE
     Indication: Myasthenia gravis
     Dosage: 60 MILLIGRAM, ONCE DAILY (QD)
     Route: 048
     Dates: start: 20240806, end: 20240814
  19. MESTINON [Concomitant]
     Active Substance: PYRIDOSTIGMINE BROMIDE
     Dosage: 120 MILLIGRAM, ONCE DAILY (QD)
     Route: 048
     Dates: start: 20240815, end: 20250103
  20. EFGARTIGIMOD ALFA\HYALURONIDASE-QVFC [Concomitant]
     Active Substance: EFGARTIGIMOD ALFA\HYALURONIDASE-QVFC
     Indication: Myasthenia gravis
     Dosage: 5.6 MILLILITER, WEEKLY (QW)
     Dates: start: 20240820, end: 20240910
  21. EFGARTIGIMOD ALFA\HYALURONIDASE-QVFC [Concomitant]
     Active Substance: EFGARTIGIMOD ALFA\HYALURONIDASE-QVFC
     Dosage: 5.6 MILLILITER, WEEKLY (QW)
     Dates: start: 20241011, end: 20241101
  22. EFGARTIGIMOD ALFA\HYALURONIDASE-QVFC [Concomitant]
     Active Substance: EFGARTIGIMOD ALFA\HYALURONIDASE-QVFC
     Dosage: 5.6 MILLILITER, WEEKLY (QW)
     Dates: start: 20241122, end: 20241219
  23. EFGARTIGIMOD ALFA\HYALURONIDASE-QVFC [Concomitant]
     Active Substance: EFGARTIGIMOD ALFA\HYALURONIDASE-QVFC
     Dosage: 5.6 MILLILITER, WEEKLY (QW)
     Dates: start: 20250110, end: 20250117
  24. EFGARTIGIMOD ALFA\HYALURONIDASE-QVFC [Concomitant]
     Active Substance: EFGARTIGIMOD ALFA\HYALURONIDASE-QVFC
     Dosage: 5.6 MILLILITER, WEEKLY (QW)
     Dates: start: 20250219, end: 20250319
  25. EFGARTIGIMOD ALFA\HYALURONIDASE-QVFC [Concomitant]
     Active Substance: EFGARTIGIMOD ALFA\HYALURONIDASE-QVFC
     Dosage: 5.6 MILLILITER, WEEKLY (QW)
     Dates: start: 20250401
  26. RIVAROXABAN [Concomitant]
     Active Substance: RIVAROXABAN
     Indication: Product used for unknown indication
     Dosage: 15 MILLIGRAM, ONCE DAILY (QD)
     Route: 048
     Dates: end: 20241221
  27. ESOMEPRAZOLE [Concomitant]
     Active Substance: ESOMEPRAZOLE
     Indication: Prophylaxis
     Dosage: 20 MILLIGRAM, ONCE DAILY (QD)
     Route: 048
  28. SULFAMETHOXAZOLE\TRIMETHOPRIM [Concomitant]
     Active Substance: SULFAMETHOXAZOLE\TRIMETHOPRIM
     Indication: Prophylaxis
     Dosage: UNK, ONCE DAILY (QD)
     Route: 048
  29. BELSOMRA [Concomitant]
     Active Substance: SUVOREXANT
     Indication: Product used for unknown indication
     Dosage: 10 MILLIGRAM, ONCE DAILY (QD)
     Route: 048
  30. CARBOCYSTEINE [Concomitant]
     Active Substance: CARBOCYSTEINE
     Indication: Prophylaxis
     Dosage: 1500 MILLIGRAM, ONCE DAILY (QD)
     Route: 048
  31. MIYA-BM [Concomitant]
     Active Substance: CLOSTRIDIUM BUTYRICUM SPORES STRAIN M-55
     Indication: Product used for unknown indication
     Dosage: UNK, ONCE DAILY (QD)
     Route: 048
  32. REFLEX [Concomitant]
     Active Substance: MIRTAZAPINE
     Indication: Product used for unknown indication
     Dosage: 15 MILLIGRAM, ONCE DAILY (QD)
     Route: 048
  33. RAMELTEON [Concomitant]
     Active Substance: RAMELTEON
     Indication: Product used for unknown indication
     Dosage: 8 MILLIGRAM, ONCE DAILY (QD)
     Route: 048
  34. EZETIMIBE [Concomitant]
     Active Substance: EZETIMIBE
     Indication: Product used for unknown indication
     Dosage: 10 MILLIGRAM, ONCE DAILY (QD)
     Route: 048
     Dates: start: 20241106
  35. CEFTRIAXONE [Concomitant]
     Active Substance: CEFTRIAXONE
     Indication: Product used for unknown indication
     Dosage: 4 GRAM, ONCE DAILY (QD)
     Dates: start: 20241229, end: 20241231
  36. CEFTRIAXONE [Concomitant]
     Active Substance: CEFTRIAXONE
     Dosage: 4 GRAM, ONCE DAILY (QD)
     Dates: start: 20250123, end: 20250203
  37. MEROPENEM [Concomitant]
     Active Substance: MEROPENEM
     Indication: Product used for unknown indication
     Dosage: 6 GRAM, ONCE DAILY (QD)
     Dates: start: 20241231, end: 20250106
  38. VANCOMYCIN HYDROCHLORIDE [Concomitant]
     Active Substance: VANCOMYCIN HYDROCHLORIDE
     Indication: Product used for unknown indication
     Dosage: 4 GRAM, ONCE DAILY (QD)
     Route: 048
     Dates: start: 20241231, end: 20250109
  39. SODIUM FERROUS CITRATE [Concomitant]
     Active Substance: SODIUM FERROUS CITRATE
     Indication: Product used for unknown indication
     Dosage: UNK, ONCE DAILY (QD)
     Route: 048
     Dates: start: 20240807, end: 20240912
  40. SODIUM FERROUS CITRATE [Concomitant]
     Active Substance: SODIUM FERROUS CITRATE
     Dosage: UNK, ONCE DAILY (QD)
     Route: 048
     Dates: start: 20241228
  41. EVENITY [Concomitant]
     Active Substance: ROMOSOZUMAB-AQQG
     Indication: Prophylaxis
     Dosage: 210 MILLIGRAM, MONTHLY (QM)
     Route: 058
     Dates: end: 20240828
  42. BONALON [Concomitant]
     Active Substance: ALENDRONATE SODIUM
     Indication: Prophylaxis
     Dosage: 35 MILLIGRAM, WEEKLY (QW)
     Route: 048
     Dates: start: 20241106
  43. AMPICILLIN SODIUM\SULBACTAM SODIUM [Concomitant]
     Active Substance: AMPICILLIN SODIUM\SULBACTAM SODIUM
     Indication: Product used for unknown indication
     Dosage: 6 GRAM, ONCE DAILY (QD)
     Dates: start: 20250205, end: 20250218
  44. RIKKUNSHITO [ATRACTYLODES LANCEA RHIZOME;CITRUS X AURANTIUM PEEL;GLYCY [Concomitant]
     Indication: Product used for unknown indication
     Dosage: 7.5 GRAM, ONCE DAILY (QD)
     Route: 048
     Dates: start: 20241106, end: 20241220

REACTIONS (6)
  - Myasthenia gravis crisis [Recovering/Resolving]
  - Abdominal abscess [Recovered/Resolved]
  - Pseudomembranous colitis [Recovered/Resolved]
  - Pyrexia [Recovered/Resolved]
  - Laryngeal mass [Not Recovered/Not Resolved]
  - Therapeutic response decreased [Unknown]

NARRATIVE: CASE EVENT DATE: 20241002
